FAERS Safety Report 4731727-X (Version None)
Quarter: 2005Q3

REPORT INFORMATION
  Report Type: 
  Country: None (occurrence: None)
  Receive Date: 20050725
  Receipt Date: 20041105
  Transmission Date: 20060218
  Serious: Yes (Disabling)
  Sender: FDA-Public Use
  Company Number: WAES 0306USA00856

PATIENT
  Age: 42 Year
  Sex: Male
  Weight: 86.637 kg

DRUGS (26)
  1. VIOXX [Suspect]
     Dosage: PO
     Route: 048
     Dates: start: 20001027, end: 20030104
  2. CENTRUM [Concomitant]
  3. CIPROFLOXACIN HCL [Concomitant]
  4. CLARITIN [Concomitant]
  5. LEVAQUIN [Concomitant]
  6. NITROQUICK [Concomitant]
  7. PANLOR SS [Concomitant]
  8. PAXIL [Concomitant]
  9. PENICILLIN VK [Concomitant]
  10. PRILOSEC [Concomitant]
  11. PROTONIX [Concomitant]
  12. TOPROL-XL [Concomitant]
  13. ULTRAM [Concomitant]
  14. ACETAMINOPHEN AND HYDROCODONE BITARTRATE [Concomitant]
  15. ACETAMINOPHEN WITH PROPOXYPHENE HCL TAB [Concomitant]
  16. ALPRAZOLAM [Concomitant]
  17. AMITRIPTYLINE HCL [Concomitant]
  18. AMOXICILLIN (+) CLAVULANATE POTA [Concomitant]
  19. CLINDAMYCIN [Concomitant]
  20. FAMOTIDINE [Concomitant]
  21. GUAIFENESIN (+) HYDROCODONE BITA [Concomitant]
  22. METHOCARBAMOL [Concomitant]
  23. METRONIDAZOLE [Concomitant]
  24. OMEPRAZOLE [Concomitant]
  25. PROMETHAZINE [Concomitant]
  26. TRAMADOL HYDROCHLORIDE [Concomitant]

REACTIONS (25)
  - ABDOMINAL PAIN [None]
  - ABSCESS JAW [None]
  - ADVERSE EVENT [None]
  - ANXIETY [None]
  - BACK PAIN [None]
  - CHEST PAIN [None]
  - COLONIC POLYP [None]
  - DEPRESSION [None]
  - DIVERTICULITIS [None]
  - DYSURIA [None]
  - EPIDIDYMITIS [None]
  - FALL [None]
  - GASTRITIS [None]
  - GASTROINTESTINAL HAEMORRHAGE [None]
  - HAEMORRHOIDS [None]
  - HEADACHE [None]
  - INSOMNIA [None]
  - MUSCULOSKELETAL PAIN [None]
  - PAIN IN EXTREMITY [None]
  - PANIC DISORDER [None]
  - PSEUDODEMENTIA [None]
  - RECTAL HAEMORRHAGE [None]
  - TOOTH ABSCESS [None]
  - ULCER [None]
  - UPPER RESPIRATORY TRACT INFECTION [None]
